FAERS Safety Report 4677855-9 (Version None)
Quarter: 2005Q2

REPORT INFORMATION
  Report Type: 
  Country: None (occurrence: None)
  Receive Date: 20050527
  Receipt Date: 20050513
  Transmission Date: 20051028
  Serious: Yes (Other)
  Sender: FDA-Public Use
  Company Number: 2005-01697

PATIENT
  Age: 50 Year
  Sex: Male

DRUGS (4)
  1. ANDRODERM [Suspect]
     Indication: HYPOGONADISM MALE
     Dosage: SEE IMAGE
     Route: 062
     Dates: start: 20020501, end: 20040801
  2. ANDRODERM [Suspect]
     Indication: HYPOGONADISM MALE
     Dosage: SEE IMAGE
     Route: 062
     Dates: start: 20040801
  3. ALPRAZOLAM [Suspect]
     Indication: DEPRESSION
     Dosage: SEE IMAGE
     Route: 048
     Dates: start: 19930101, end: 20040801
  4. ALPRAZOLAM [Suspect]
     Indication: DEPRESSION
     Dosage: SEE IMAGE
     Route: 048
     Dates: start: 20040801

REACTIONS (6)
  - APPLICATION SITE ERYTHEMA [None]
  - DRUG WITHDRAWAL CONVULSIONS [None]
  - HAEMORRHAGE [None]
  - INSOMNIA [None]
  - PHARMACEUTICAL PRODUCT COMPLAINT [None]
  - TOOTH FRACTURE [None]
